FAERS Safety Report 11364184 (Version 4)
Quarter: 2016Q1

REPORT INFORMATION
  Report Type: Report from Study
  Country: JP (occurrence: JP)
  Receive Date: 20150811
  Receipt Date: 20160128
  Transmission Date: 20160525
  Serious: Yes (Other)
  Sender: FDA-Public Use
  Company Number: PHHY2014JP063876

PATIENT
  Age: 3 Year
  Sex: Male

DRUGS (15)
  1. ACZ885 [Suspect]
     Active Substance: CANAKINUMAB
     Indication: MUCKLE-WELLS SYNDROME
     Dosage: 30 MG, UNK
     Route: 058
     Dates: start: 20130530
  2. ACZ885 [Suspect]
     Active Substance: CANAKINUMAB
     Dosage: 75 MG, UNK
     Route: 058
     Dates: start: 20130626
  3. ACZ885 [Suspect]
     Active Substance: CANAKINUMAB
     Dosage: 96 MG, UNK
     Route: 058
     Dates: start: 20130821
  4. ACZ885 [Suspect]
     Active Substance: CANAKINUMAB
     Dosage: 45 MG, UNK
     Route: 058
     Dates: start: 20130606
  5. ACZ885 [Suspect]
     Active Substance: CANAKINUMAB
     Dosage: 100 MG, UNK
     Route: 058
     Dates: start: 20131211
  6. ACZ885 [Suspect]
     Active Substance: CANAKINUMAB
     Dosage: 112.5 MG, UNK
     Route: 058
     Dates: start: 20141119
  7. ACZ885 [Suspect]
     Active Substance: CANAKINUMAB
     Dosage: 100 MG, UNK
     Route: 058
     Dates: start: 20140205
  8. ACZ885 [Suspect]
     Active Substance: CANAKINUMAB
     Dosage: 112.5 MG, UNK
     Route: 058
     Dates: start: 20150114
  9. ACZ885 [Suspect]
     Active Substance: CANAKINUMAB
     Dosage: 115.5 MG, UNK
     Route: 058
     Dates: start: 20150311
  10. ACZ885 [Suspect]
     Active Substance: CANAKINUMAB
     Dosage: 121.5 MG, UNK
     Route: 058
     Dates: start: 20150508
  11. ACZ885 [Suspect]
     Active Substance: CANAKINUMAB
     Dosage: 105 MG, UNK
     Route: 058
     Dates: start: 20140609
  12. ACZ885 [Suspect]
     Active Substance: CANAKINUMAB
     Dosage: 105 MG, UNK
     Route: 058
     Dates: start: 20140402
  13. ACZ885 [Suspect]
     Active Substance: CANAKINUMAB
     Dosage: 105 MG, UNK
     Route: 058
     Dates: start: 20140924, end: 20140924
  14. ACZ885 [Suspect]
     Active Substance: CANAKINUMAB
     Dosage: 105 MG, UNK
     Route: 058
     Dates: start: 20140730
  15. ACZ885 [Suspect]
     Active Substance: CANAKINUMAB
     Dosage: 96 MG, UNK
     Route: 058
     Dates: start: 20131018

REACTIONS (19)
  - Molluscum contagiosum [Recovered/Resolved]
  - Influenza [Recovered/Resolved]
  - Bronchitis [Recovered/Resolved]
  - Stomatitis [Recovered/Resolved]
  - Upper respiratory tract infection [Recovered/Resolved]
  - Eczema [Recovered/Resolved]
  - Upper respiratory tract infection [Recovered/Resolved]
  - Asteatosis [Recovering/Resolving]
  - Varicella [Recovered/Resolved]
  - Upper respiratory tract infection [Recovered/Resolved]
  - Upper respiratory tract infection [Recovered/Resolved]
  - Sinusitis [Recovered/Resolved]
  - Tonsillitis bacterial [Recovered/Resolved]
  - Upper respiratory tract infection [Recovered/Resolved]
  - Stomatitis [Recovered/Resolved]
  - Upper respiratory tract infection [Recovered/Resolved]
  - Upper respiratory tract infection [Recovered/Resolved]
  - Viral pharyngitis [Recovered/Resolved]
  - Upper respiratory tract infection [Recovering/Resolving]

NARRATIVE: CASE EVENT DATE: 20131226
